FAERS Safety Report 12953468 (Version 2)
Quarter: 2016Q4

REPORT INFORMATION
  Report Type: Spontaneous
  Country: US (occurrence: US)
  Receive Date: 20161117
  Receipt Date: 20161121
  Transmission Date: 20170207
  Serious: Yes (Disabling)
  Sender: FDA-Public Use
  Company Number: US-SANOFI-AVENTIS-2012SA060963

PATIENT
  Sex: Female

DRUGS (12)
  1. SOLOSTAR [Suspect]
     Active Substance: DEVICE
     Indication: TYPE 1 DIABETES MELLITUS
     Dates: start: 2011, end: 2016
  2. SOLOSTAR [Concomitant]
     Active Substance: DEVICE
  3. APIDRA SOLOSTAR [Suspect]
     Active Substance: INSULIN GLULISINE
     Indication: TYPE 1 DIABETES MELLITUS
     Dosage: DOSE: 4-10 UNITS SLIDING SCALE?FREQUENCY: 3 OR MORE TIMES
     Route: 058
     Dates: start: 2011, end: 2016
  4. SOLOSTAR [Suspect]
     Active Substance: DEVICE
     Indication: TYPE 1 DIABETES MELLITUS
     Dates: start: 2011, end: 2016
  5. SOLOSTAR [Suspect]
     Active Substance: DEVICE
     Indication: TYPE 1 DIABETES MELLITUS
     Dates: start: 2011, end: 2016
  6. LANTUS SOLOSTAR [Concomitant]
     Active Substance: INSULIN GLARGINE
     Dosage: DOSE:18 UNIT(S)
  7. APIDRA SOLOSTAR [Suspect]
     Active Substance: INSULIN GLULISINE
     Indication: TYPE 1 DIABETES MELLITUS
     Dosage: DOSE: 4-10 UNITS SLIDING SCALE?FREQUENCY: 3 OR MORE TIMES
     Route: 058
     Dates: start: 2011, end: 2016
  8. APIDRA SOLOSTAR [Suspect]
     Active Substance: INSULIN GLULISINE
     Indication: TYPE 1 DIABETES MELLITUS
     Dosage: DOSE: 4-10 UNITS SLIDING SCALE?FREQUENCY: 3 OR MORE TIMES
     Route: 058
     Dates: start: 2011, end: 2016
  9. SOLOSTAR [Suspect]
     Active Substance: DEVICE
     Indication: TYPE 1 DIABETES MELLITUS
     Dates: start: 2011, end: 2016
  10. APIDRA SOLOSTAR [Suspect]
     Active Substance: INSULIN GLULISINE
     Indication: TYPE 1 DIABETES MELLITUS
     Dosage: DOSE: 4-10 UNITS SLIDING SCALE?FREQUENCY: 3 OR MORE TIMES
     Route: 058
     Dates: start: 2011, end: 2016
  11. APIDRA SOLOSTAR [Suspect]
     Active Substance: INSULIN GLULISINE
     Indication: TYPE 1 DIABETES MELLITUS
     Dosage: DOSE: 4-10 UNITS SLIDING SCALE?FREQUENCY: 3 OR MORE TIMES
     Route: 058
     Dates: start: 2011, end: 2016
  12. SOLOSTAR [Suspect]
     Active Substance: DEVICE
     Indication: TYPE 1 DIABETES MELLITUS
     Dates: start: 2011, end: 2016

REACTIONS (4)
  - Blood glucose increased [Recovered/Resolved]
  - Product use issue [Unknown]
  - Parkinson^s disease [Unknown]
  - Device issue [Unknown]

NARRATIVE: CASE EVENT DATE: 2016
